FAERS Safety Report 19857451 (Version 4)
Quarter: 2021Q4

REPORT INFORMATION
  Report Type: Report from Study
  Country: US (occurrence: US)
  Receive Date: 20210920
  Receipt Date: 20211202
  Transmission Date: 20220303
  Serious: Yes (Disabling)
  Sender: FDA-Public Use
  Company Number: US-NOVARTISPH-NVSC2021US211759

PATIENT
  Age: 35 Year
  Sex: Female
  Weight: 80.726 kg

DRUGS (2)
  1. KESIMPTA [Suspect]
     Active Substance: OFATUMUMAB
     Indication: Multiple sclerosis
     Dosage: UNK UNK, QW
     Route: 030
     Dates: start: 20210811
  2. KESIMPTA [Suspect]
     Active Substance: OFATUMUMAB
     Dosage: 20 MG (ONE INJECTION PER WEEK FOR THREE WEEKS, THEN ONE WEEK OFF, THEN ONCE A MONTH INJECTIONS.)
     Route: 058
     Dates: start: 20210826

REACTIONS (3)
  - Pain [Unknown]
  - Bone pain [Not Recovered/Not Resolved]
  - Myalgia [Not Recovered/Not Resolved]

NARRATIVE: CASE EVENT DATE: 20210826
